FAERS Safety Report 20670881 (Version 2)
Quarter: 2022Q2

REPORT INFORMATION
  Report Type: Spontaneous
  Country: JP (occurrence: JP)
  Receive Date: 20220404
  Receipt Date: 20220527
  Transmission Date: 20220721
  Serious: Yes (Death, Other)
  Sender: FDA-Public Use
  Company Number: JP-MSD-M2022-13448

PATIENT
  Age: 54 Year
  Sex: Male

DRUGS (8)
  1. MOLNUPIRAVIR [Suspect]
     Active Substance: MOLNUPIRAVIR
     Indication: COVID-19 treatment
     Dosage: 800 MILLIGRAM, BID
     Route: 048
     Dates: start: 20220326, end: 202203
  2. PREDONINE [Concomitant]
     Active Substance: PREDNISOLONE
     Dosage: 20 MILLIGRAM, BID (IN THE MORNING AND EVENING)
     Route: 048
     Dates: start: 202112, end: 202203
  3. LANSOPRAZOLE [Concomitant]
     Active Substance: LANSOPRAZOLE
     Dosage: 15 MILLIGRAM, QD (IN THE MORNING)
     Route: 048
     Dates: start: 202112, end: 202203
  4. LEVETIRACETAM [Concomitant]
     Active Substance: LEVETIRACETAM
     Dosage: 10 MILLIGRAM, BID
     Route: 048
     Dates: start: 202112, end: 202203
  5. HERBALS [Concomitant]
     Active Substance: HERBALS
     Dosage: 22.5 MILLIGRAM, TID (BEFORE MEALS)
     Route: 048
     Dates: start: 202112, end: 202203
  6. FUROSEMIDE [Concomitant]
     Active Substance: FUROSEMIDE
     Dosage: 40 MILLIGRAM, BID
     Route: 048
     Dates: start: 202112, end: 202203
  7. BIFIDOBACTERIUM SPP. [Concomitant]
     Active Substance: BIFIDOBACTERIUM SPP.
     Dosage: 30 MILLIGRAM, TID
     Route: 048
     Dates: start: 202112, end: 202203
  8. MINOCYCLINE HYDROCHLORIDE [Concomitant]
     Active Substance: MINOCYCLINE HYDROCHLORIDE
     Dosage: 200 MILLIGRAM, BID (IN THE MORNING AND EVENING)
     Route: 048
     Dates: start: 202112, end: 202203

REACTIONS (1)
  - Sepsis [Fatal]

NARRATIVE: CASE EVENT DATE: 20220330
